FAERS Safety Report 4374753-5 (Version None)
Quarter: 2004Q2

REPORT INFORMATION
  Report Type: 
  Country: None (occurrence: None)
  Receive Date: 20040604
  Receipt Date: 20040526
  Transmission Date: 20050107
  Serious: Yes (Other)
  Sender: FDA-Public Use
  Company Number: 866#4#2004-00003

PATIENT
  Sex: Male

DRUGS (1)
  1. ROBAXIN-750 [Suspect]
     Dosage: 750MG, ORAL
     Route: 048

REACTIONS (2)
  - ORCHITIS [None]
  - URINARY TRACT INFECTION [None]
